FAERS Safety Report 8217563-0 (Version None)
Quarter: 2012Q1

REPORT INFORMATION
  Report Type: 
  Country: None (occurrence: None)
  Receive Date: 20120319
  Receipt Date: 20120319
  Transmission Date: 20120608
  Serious: Yes (Other)
  Sender: FDA-Public Use
  Company Number: None

PATIENT
  Age: 28 Year
  Sex: Female
  Weight: 58.967 kg

DRUGS (1)
  1. TOBRADEX [Suspect]
     Indication: EYE INFECTION
     Dosage: 5 ML
     Dates: start: 20120211, end: 20120217

REACTIONS (6)
  - DELUSION [None]
  - INSOMNIA [None]
  - HALLUCINATION [None]
  - RASH [None]
  - SKIN EXFOLIATION [None]
  - NIGHT SWEATS [None]
